FAERS Safety Report 9195129 (Version 1)
Quarter: 2013Q1

REPORT INFORMATION
  Report Type: Spontaneous
  Country: US (occurrence: US)
  Receive Date: 20130328
  Receipt Date: 20130328
  Transmission Date: 20140127
  Serious: No
  Sender: FDA-Public Use
  Company Number: US-ALLERGAN-1215986US

PATIENT
  Age: 62 Year
  Sex: Female

DRUGS (7)
  1. LATISSE 0.03% [Suspect]
     Indication: GROWTH OF EYELASHES
     Dosage: 2 GTT, UNK
     Route: 061
  2. LISINOPRIL [Concomitant]
     Indication: HYPERTENSION
     Dosage: 20 MG, UNK
  3. VERAPAMIL [Concomitant]
     Indication: HYPERTENSION
     Dosage: 120 MG, QD
  4. NEXIUM                             /01479302/ [Concomitant]
     Indication: GASTROOESOPHAGEAL REFLUX DISEASE
     Dosage: 40 MG, UNK
  5. REGLAN                             /00041901/ [Concomitant]
     Indication: GASTROOESOPHAGEAL REFLUX DISEASE
     Dosage: 10 MG, QD
  6. BYSTOLIC [Concomitant]
     Indication: HYPERTENSION
     Dosage: UNK
  7. RETIN A [Concomitant]
     Indication: DARK CIRCLES UNDER EYES
     Dosage: UNK UNK, QHS
     Route: 061

REACTIONS (1)
  - Dark circles under eyes [Not Recovered/Not Resolved]
